FAERS Safety Report 21215456 (Version 2)
Quarter: 2022Q3

REPORT INFORMATION
  Report Type: Spontaneous
  Country: US (occurrence: US)
  Receive Date: 20220816
  Receipt Date: 20220929
  Transmission Date: 20221027
  Serious: No
  Sender: FDA-Public Use
  Company Number: US-BRISTOL-MYERS SQUIBB COMPANY-2022-087047

PATIENT
  Age: 64 Year
  Sex: Female

DRUGS (1)
  1. ORENCIA [Suspect]
     Active Substance: ABATACEPT
     Indication: Product used for unknown indication
     Dosage: DOSE AND FREQ : 125 MG/ML INJECTION EVERY WEEK
     Route: 058

REACTIONS (4)
  - Blood blister [Unknown]
  - Skin discolouration [Unknown]
  - Contusion [Unknown]
  - Anaemia [Unknown]
